FAERS Safety Report 23448641 (Version 2)
Quarter: 2024Q3

REPORT INFORMATION
  Report Type: Other
  Country: US (occurrence: US)
  Receive Date: 20240127
  Receipt Date: 20240930
  Transmission Date: 20241016
  Serious: No
  Sender: TRAVERE THERAPEUTICS
  Company Number: US-TRAVERE-2023TVT00919

PATIENT
  Sex: Female

DRUGS (4)
  1. FILSPARI [Suspect]
     Active Substance: SPARSENTAN
     Indication: IgA nephropathy
     Route: 048
     Dates: start: 202312
  2. FILSPARI [Suspect]
     Active Substance: SPARSENTAN
     Route: 048
  3. AMLODIPINE BESYLATE [Concomitant]
     Active Substance: AMLODIPINE BESYLATE
  4. EZETIMIBE [Concomitant]
     Active Substance: EZETIMIBE

REACTIONS (2)
  - Pain [None]
  - Fatigue [Unknown]
